FAERS Safety Report 15115327 (Version 2)
Quarter: 2018Q3

REPORT INFORMATION
  Report Type: Report from Study
  Country: US (occurrence: US)
  Receive Date: 20180706
  Receipt Date: 20180813
  Transmission Date: 20181010
  Serious: Yes (Hospitalization, Other)
  Sender: FDA-Public Use
  Company Number: US-BRISTOL-MYERS SQUIBB COMPANY-BMS-2018-061080

PATIENT
  Age: 74 Year
  Sex: Male
  Weight: 115.65 kg

DRUGS (5)
  1. TETRAHYDROURIDINE [Suspect]
     Active Substance: TETRAHYDROURIDINE
     Indication: SQUAMOUS CELL CARCINOMA
     Dosage: 4 TAB, Q2WK
     Route: 048
     Dates: start: 20180521, end: 20180521
  2. NIVOLUMAB [Suspect]
     Active Substance: NIVOLUMAB
     Indication: NON-SMALL CELL LUNG CANCER
     Dosage: 240 MG, Q2WK
     Route: 042
     Dates: start: 20180521, end: 20180709
  3. TETRAHYDROURIDINE [Suspect]
     Active Substance: TETRAHYDROURIDINE
     Indication: PRODUCT USED FOR UNKNOWN INDICATION
     Dosage: 3 TAB, Q2WK
     Route: 048
     Dates: start: 20180710, end: 20180711
  4. DECITABINE. [Suspect]
     Active Substance: DECITABINE
     Indication: SQUAMOUS CELL CARCINOMA
     Dosage: 4 TAB, Q2WK
     Route: 048
     Dates: start: 20180521, end: 20180521
  5. DECITABINE. [Suspect]
     Active Substance: DECITABINE
     Indication: PRODUCT USED FOR UNKNOWN INDICATION
     Dosage: 3 TAB, Q2WK
     Route: 048
     Dates: start: 20180710, end: 20180711

REACTIONS (1)
  - Neutropenia [Unknown]

NARRATIVE: CASE EVENT DATE: 20180626
